FAERS Safety Report 6135420-0 (Version None)
Quarter: 2009Q1

REPORT INFORMATION
  Report Type: 
  Country: None (occurrence: None)
  Receive Date: 20090327
  Receipt Date: 20090312
  Transmission Date: 20090719
  Serious: Yes (Death, Hospitalization)
  Sender: FDA-Public Use
  Company Number: US-TYCO HEALTHCARE/MALLINCKRODT-T200900618

PATIENT
  Age: 16 Year
  Sex: Male

DRUGS (1)
  1. METHADOSE DISPERSIBLE [Suspect]
     Indication: DRUG DEPENDENCE
     Dosage: 150 MG - 200 MG, DAILY (ONE TABLET 5X DAY)
     Dates: start: 19990101, end: 20050101

REACTIONS (4)
  - COMPLETED SUICIDE [None]
  - DRUG ABUSE [None]
  - DRUG DEPENDENCE [None]
  - DRUG DIVERSION [None]
